FAERS Safety Report 9099762 (Version 1)
Quarter: 2013Q1

REPORT INFORMATION
  Report Type: Spontaneous
  Country: BR (occurrence: BR)
  Receive Date: 20130213
  Receipt Date: 20130213
  Transmission Date: 20140127
  Serious: Yes (Hospitalization, Other)
  Sender: FDA-Public Use
  Company Number: BR-ROCHE-1190241

PATIENT
  Sex: Female
  Weight: 85 kg

DRUGS (7)
  1. XOLAIR [Suspect]
     Indication: ASTHMA
     Route: 058
     Dates: start: 2010
  2. TRILEPTAL [Concomitant]
     Route: 065
  3. CARDIZEM [Concomitant]
     Route: 065
     Dates: start: 2009
  4. ACETYLSALICYLIC ACID [Concomitant]
     Route: 065
     Dates: start: 2009
  5. MONOCORDIL [Concomitant]
     Route: 065
     Dates: start: 2011
  6. LOSARTAN [Concomitant]
     Route: 065
     Dates: start: 2012
  7. PANTOPRAZOLE [Concomitant]
     Route: 065
     Dates: start: 2009

REACTIONS (3)
  - Chondropathy [Not Recovered/Not Resolved]
  - Hepatic steatosis [Unknown]
  - Mobility decreased [Recovering/Resolving]
